FAERS Safety Report 14364161 (Version 2)
Quarter: 2018Q4

REPORT INFORMATION
  Report Type: Spontaneous
  Country: CA (occurrence: CA)
  Receive Date: 20180108
  Receipt Date: 20181130
  Transmission Date: 20190204
  Serious: Yes (Other)
  Sender: FDA-Public Use
  Company Number: CA-SA-2017SA268251

PATIENT
  Age: 63 Year
  Sex: Male

DRUGS (8)
  1. APO-HYDROXYQUINE [Suspect]
     Active Substance: HYDROXYCHLOROQUINE SULFATE
     Dosage: UNK UNK,UNK
     Route: 065
  2. SIMPONI [Suspect]
     Active Substance: GOLIMUMAB
     Dosage: UNK UNK,UNK
     Route: 065
  3. SULFASALAZINE. [Suspect]
     Active Substance: SULFASALAZINE
     Indication: RHEUMATOID ARTHRITIS
     Dosage: UNK UNK,UNK
     Route: 048
  4. ACTEMRA [Suspect]
     Active Substance: TOCILIZUMAB
     Dosage: 162 MG,QW
     Route: 065
  5. ARAVA [Suspect]
     Active Substance: LEFLUNOMIDE
     Dosage: UNK UNK,UNK
     Route: 048
  6. METHOTREXATE SODIUM. [Suspect]
     Active Substance: METHOTREXATE SODIUM
     Indication: RHEUMATOID ARTHRITIS
     Dosage: 25 MG,UNK
     Route: 065
  7. PLAQUENIL [Suspect]
     Active Substance: HYDROXYCHLOROQUINE SULFATE
     Dosage: UNK UNK,UNK
     Route: 048
  8. APO-PREDNISONE [Suspect]
     Active Substance: PREDNISONE
     Dosage: UNK UNK,UNK
     Route: 065

REACTIONS (2)
  - Diverticulitis [Unknown]
  - Drug effect incomplete [Unknown]
